FAERS Safety Report 19634119 (Version 2)
Quarter: 2021Q3

REPORT INFORMATION
  Report Type: Spontaneous
  Country: GB (occurrence: GB)
  Receive Date: 20210730
  Receipt Date: 20210827
  Transmission Date: 20211014
  Serious: Yes (Other)
  Sender: FDA-Public Use
  Company Number: GB-NOVOPROD-831852

PATIENT
  Age: 64 Year
  Sex: Male
  Weight: 90 kg

DRUGS (1)
  1. TRESIBA [Suspect]
     Active Substance: INSULIN DEGLUDEC
     Indication: TYPE 2 DIABETES MELLITUS
     Dosage: 68 ARBITRARY UNITS, QD
     Route: 058
     Dates: start: 20150526

REACTIONS (2)
  - Osteogenesis imperfecta [Unknown]
  - Rib fracture [Unknown]

NARRATIVE: CASE EVENT DATE: 202103
